FAERS Safety Report 6261925-8 (Version None)
Quarter: 2009Q3

REPORT INFORMATION
  Report Type: 
  Country: None (occurrence: None)
  Receive Date: 20090709
  Receipt Date: 20090304
  Transmission Date: 20100115
  Serious: Yes (Death, Hospitalization)
  Sender: FDA-Public Use
  Company Number: B0582763A

PATIENT
  Age: 77 Year
  Sex: Female
  Weight: 105 kg

DRUGS (4)
  1. OMACOR [Suspect]
     Dosage: 1000MG PER DAY
     Route: 048
     Dates: start: 20031101, end: 20040825
  2. BETA BLOCKER [Concomitant]
     Dates: start: 20040825
  3. MARCUMAR [Concomitant]
     Dates: start: 20040825
  4. STATINS [Concomitant]

REACTIONS (3)
  - CARDIAC FAILURE [None]
  - CONDITION AGGRAVATED [None]
  - OEDEMA [None]
